FAERS Safety Report 24344156 (Version 3)
Quarter: 2024Q3

REPORT INFORMATION
  Report Type: Spontaneous
  Country: US (occurrence: US)
  Receive Date: 20240920
  Receipt Date: 20240930
  Transmission Date: 20241017
  Serious: No
  Sender: PFIZER
  Company Number: US-PFIZER INC-202400260078

PATIENT
  Age: 24 Year
  Sex: Female

DRUGS (4)
  1. VELSIPITY [Suspect]
     Active Substance: ETRASIMOD ARGININE
     Indication: Colitis ulcerative
     Dosage: 2 MG, 1 TABLET EVERY DAY
  2. TRAZODONE [Concomitant]
     Active Substance: TRAZODONE HYDROCHLORIDE
     Dosage: UNK
  3. FLUOXETINE [Concomitant]
     Active Substance: FLUOXETINE HYDROCHLORIDE
     Dosage: UNK
  4. DESONIDE [Concomitant]
     Active Substance: DESONIDE
     Dosage: UNK

REACTIONS (1)
  - Hypotension [Unknown]
